FAERS Safety Report 5089063-0 (Version None)
Quarter: 2006Q3

REPORT INFORMATION
  Report Type: 
  Country: None (occurrence: None)
  Receive Date: 20060825
  Receipt Date: 20060524
  Transmission Date: 20061208
  Serious: Yes (Other)
  Sender: FDA-Public Use
  Company Number: GB-GLAXOSMITHKLINE-B0425959A

PATIENT
  Age: 42 Year
  Sex: Female
  Weight: 79.5 kg

DRUGS (21)
  1. PIRITON SYRUP [Suspect]
     Indication: ASTHMA
     Dosage: 10ML TWICE PER DAY
     Route: 048
     Dates: start: 20060515, end: 20060520
  2. PIRITON SYRUP [Suspect]
     Indication: CONDITION AGGRAVATED
     Dosage: 10ML TWICE PER DAY
     Route: 048
     Dates: start: 20060515, end: 20060520
  3. GAVISCON [Concomitant]
     Route: 048
  4. SALINE STERIPOULES [Concomitant]
     Dosage: 1AMP THREE TIMES PER DAY
  5. SALBUTAMOL INHALER [Concomitant]
     Dosage: 2PUFF AS REQUIRED
     Route: 055
  6. ACETAMINOPHEN [Concomitant]
     Dosage: 2TAB FOUR TIMES PER DAY
     Route: 048
  7. ASMANEX [Concomitant]
     Route: 048
  8. OXYGEN [Concomitant]
  9. CEFIXIME CHEWABLE [Concomitant]
     Dosage: 1TAB TWICE PER DAY
     Route: 048
  10. ALENDRONIC ACID [Concomitant]
     Dosage: 70MG WEEKLY
     Route: 048
  11. RANITIDINE [Concomitant]
     Dosage: 1TAB TWICE PER DAY
     Route: 048
  12. BETNESOL N [Concomitant]
  13. EPIPEN [Concomitant]
  14. CINNARIZINE [Concomitant]
     Dosage: 2TAB THREE TIMES PER DAY
     Route: 048
  15. FORMOTEROL POWDER [Concomitant]
     Dosage: 2PUFF THREE TIMES PER DAY
     Route: 055
  16. BENDROFLUAZIDE [Concomitant]
     Dosage: 1TAB PER DAY
     Route: 048
  17. ASMANEX [Concomitant]
  18. OXYGEN [Concomitant]
  19. CEFIXIME CHEWABLE [Concomitant]
     Dosage: 200MG TWICE PER DAY
     Route: 048
  20. CHLORPHENAMINE [Concomitant]
     Dosage: 4MG THREE TIMES PER DAY
     Route: 048
  21. ACETAMINOPHEN [Concomitant]

REACTIONS (5)
  - ASTHMA [None]
  - DYSPNOEA [None]
  - PHARYNGEAL OEDEMA [None]
  - SENSATION OF FOREIGN BODY [None]
  - THROAT TIGHTNESS [None]
